FAERS Safety Report 12754922 (Version 2)
Quarter: 2016Q3

REPORT INFORMATION
  Report Type: Spontaneous
  Country: US (occurrence: US)
  Receive Date: 20160916
  Receipt Date: 20160919
  Transmission Date: 20161109
  Serious: Yes (Other)
  Sender: FDA-Public Use
  Company Number: US-TEVA-691863USA

PATIENT

DRUGS (1)
  1. COPAXONE [Suspect]
     Active Substance: GLATIRAMER ACETATE
     Dosage: 20 MILLIGRAM/MILLILITERS DAILY;

REACTIONS (2)
  - Drug ineffective [Unknown]
  - Multiple sclerosis [Unknown]
